FAERS Safety Report 7721372-6 (Version None)
Quarter: 2011Q3

REPORT INFORMATION
  Report Type: 
  Country: None (occurrence: None)
  Receive Date: 20110831
  Receipt Date: 20110825
  Transmission Date: 20111222
  Serious: Yes (Hospitalization)
  Sender: FDA-Public Use
  Company Number: DE-ROCHE-679181

PATIENT
  Sex: Female
  Weight: 50 kg

DRUGS (6)
  1. CAPECITABINE [Suspect]
     Dosage: IN NORMAL DOSE.
     Route: 048
     Dates: start: 20100111
  2. AMITRIPTYLINE HCL [Concomitant]
     Indication: DEPRESSION
     Route: 048
     Dates: start: 20091211
  3. OXALIPLATIN [Suspect]
     Indication: RECTAL CANCER
     Dosage: SCHEDULE: 50MG/M2  BID D1-D15. OF 3 WEEK CYCLE.
     Route: 042
     Dates: start: 20090831, end: 20091228
  4. CAPECITABINE [Suspect]
     Indication: RECTAL CANCER
     Dosage: SCHEDULE: 0.25 MG/M2,BID DAY 2 - DAY 33 W/O WEEKENDS .
     Route: 048
     Dates: start: 20090831, end: 20091007
  5. CAPECITABINE [Suspect]
     Dosage: LAST DOSE GIVEN BEFORE THE EVENT OCCURRED.
     Route: 048
  6. LYRICA [Concomitant]
     Route: 048
     Dates: start: 20091120

REACTIONS (2)
  - PERIPHERAL NERVE LESION [None]
  - IMPAIRED HEALING [None]
